FAERS Safety Report 17149301 (Version 1)
Quarter: 2019Q4

REPORT INFORMATION
  Report Type: Spontaneous
  Country: SE (occurrence: SE)
  Receive Date: 20191213
  Receipt Date: 20191213
  Transmission Date: 20200122
  Serious: Yes (Hospitalization)
  Sender: FDA-Public Use
  Company Number: SE-TEVA-2019-SE-1150625

PATIENT
  Age: 17 Year
  Sex: Female

DRUGS (5)
  1. FLUOXETINE [Suspect]
     Active Substance: FLUOXETINE HYDROCHLORIDE
     Dosage: MAX 10 X 20 MG ^UNCLEAR IF OVERDOSED^
     Route: 048
     Dates: start: 20190622, end: 20190622
  2. MELATONIN [Suspect]
     Active Substance: MELATONIN
     Dosage: ^UNCLEAR HOW MANY, CAN WITH 100, HALF ARE LEFT^ (3 MG)
     Route: 048
     Dates: start: 20190622, end: 20190622
  3. OXAZEPAM. [Suspect]
     Active Substance: OXAZEPAM
     Dosage: ^UP TO 20 ST^, UNKNOWN STRENGTH
     Route: 048
     Dates: start: 20190622, end: 20190622
  4. IMOVANE [Suspect]
     Active Substance: ZOPICLONE
     Dosage: ^MAYBE 10 PCS UP TO 20 ST^
     Route: 048
     Dates: start: 20190622, end: 20190622
  5. LERGIGAN (PROMETHAZINE HYDROCHLORIDE) [Suspect]
     Active Substance: PROMETHAZINE HYDROCHLORIDE
     Dosage: ^UPP TILL 18 ST^X25 MG
     Route: 048
     Dates: start: 20190622, end: 20190622

REACTIONS (3)
  - Intentional self-injury [Unknown]
  - Depressed level of consciousness [Unknown]
  - Intentional overdose [Unknown]

NARRATIVE: CASE EVENT DATE: 20190622
